FAERS Safety Report 6037548-2 (Version None)
Quarter: 2009Q1

REPORT INFORMATION
  Report Type: 
  Country: None (occurrence: None)
  Receive Date: 20090114
  Receipt Date: 20090105
  Transmission Date: 20090719
  Serious: Yes (Hospitalization)
  Sender: FDA-Public Use
  Company Number: GB-ELI_LILLY_AND_COMPANY-GB200811006026

PATIENT
  Sex: Female

DRUGS (4)
  1. CYMBALTA [Suspect]
     Indication: DEPRESSION
     Dosage: UNK, UNKNOWN
     Route: 048
     Dates: start: 20081112, end: 20081116
  2. CYMBALTA [Interacting]
     Dosage: UNK, UNKNOWN
     Route: 048
  3. LITHIUM [Concomitant]
     Indication: BIPOLAR DISORDER
     Dosage: 7 ML, 2/D
     Route: 048
     Dates: start: 20080401
  4. LISINOPRIL [Concomitant]
     Indication: HYPERTENSION
     Dosage: 30 MG, UNKNOWN
     Route: 048

REACTIONS (4)
  - DRUG INTERACTION [None]
  - NAUSEA [None]
  - THERAPEUTIC AGENT TOXICITY [None]
  - VOMITING [None]
